FAERS Safety Report 20291619 (Version 1)
Quarter: 2022Q1

REPORT INFORMATION
  Report Type: Spontaneous
  Country: JP (occurrence: JP)
  Receive Date: 20220104
  Receipt Date: 20220104
  Transmission Date: 20220423
  Serious: Yes (Other)
  Sender: FDA-Public Use
  Company Number: JP-Eisai-202110402_LUN_P_1

PATIENT
  Age: 83 Year
  Sex: Female
  Weight: 30 kg

DRUGS (2)
  1. LUNESTA [Suspect]
     Active Substance: ESZOPICLONE
     Dosage: 1 MG, QD
     Route: 048
  2. LUNESTA [Suspect]
     Active Substance: ESZOPICLONE
     Dosage: 1 MG, QD
     Route: 048
     Dates: end: 20211224

REACTIONS (3)
  - Dementia [Unknown]
  - Blood pressure decreased [Unknown]
  - Somnambulism [Unknown]
